FAERS Safety Report 5919734-2 (Version None)
Quarter: 2008Q4

REPORT INFORMATION
  Report Type: 
  Country: None (occurrence: None)
  Receive Date: 20081015
  Receipt Date: 20081007
  Transmission Date: 20090506
  Serious: Yes (Hospitalization, Other)
  Sender: FDA-Public Use
  Company Number: JP-B.I. PHARMACEUTICALS,INC./RIDGEFIELD-2007-BP-23530NB

PATIENT
  Sex: Female
  Weight: 31 kg

DRUGS (9)
  1. MICARDIS [Suspect]
     Indication: HYPERTENSION
     Dosage: 20MG
     Route: 048
     Dates: start: 20060724
  2. LASIX [Suspect]
     Dosage: 20MG
     Route: 048
     Dates: start: 20070123, end: 20080411
  3. TANATRIL [Suspect]
     Indication: HYPERTENSION
     Dosage: 1.25MG
     Route: 048
     Dates: start: 20080212, end: 20080301
  4. LUPRAC [Suspect]
     Indication: CARDIAC FAILURE
     Dosage: 2MG
     Route: 048
     Dates: start: 20061128
  5. NORVASC [Concomitant]
     Indication: HYPERTENSION
     Dosage: 5MG
     Route: 048
     Dates: start: 20051208, end: 20070104
  6. ASPIRIN [Concomitant]
     Dosage: 100MG
     Route: 048
     Dates: start: 20060317
  7. HERBESSER [Concomitant]
     Dosage: 30MG
     Route: 048
     Dates: start: 20061106, end: 20080611
  8. NITOROL R [Concomitant]
     Dosage: 40MG
     Route: 048
     Dates: start: 20051208
  9. CALBLOCK [Concomitant]
     Indication: HYPERTENSION
     Dosage: 8MG
     Route: 048
     Dates: start: 20080523

REACTIONS (9)
  - ATRIAL FLUTTER [None]
  - BLOOD CREATININE INCREASED [None]
  - BLOOD UREA INCREASED [None]
  - CARDIAC FAILURE [None]
  - HYPERKALAEMIA [None]
  - HYPERURICAEMIA [None]
  - PYELONEPHRITIS [None]
  - RENAL FAILURE CHRONIC [None]
  - URINARY TRACT INFECTION [None]
